FAERS Safety Report 24384396 (Version 2)
Quarter: 2024Q4

REPORT INFORMATION
  Report Type: Spontaneous
  Country: DE (occurrence: DE)
  Receive Date: 20241001
  Receipt Date: 20241017
  Transmission Date: 20250114
  Serious: No
  Sender: CHIESI
  Company Number: DE-CHIESI-2024CHF06395

PATIENT
  Age: 21 Year
  Sex: Male
  Weight: 43 kg

DRUGS (2)
  1. ELFABRIO [Suspect]
     Active Substance: PEGUNIGALSIDASE ALFA-IWXJ
     Indication: Fabry^s disease
     Dosage: 40 MILLIGRAM
     Route: 042
     Dates: start: 202402
  2. PREDNISOLONE [Concomitant]
     Active Substance: PREDNISOLONE
     Indication: Premedication
     Dosage: 10 MILLIGRAM, QD

REACTIONS (2)
  - Facial paresis [Recovering/Resolving]
  - Off label use [Not Recovered/Not Resolved]

NARRATIVE: CASE EVENT DATE: 20240201
